FAERS Safety Report 5425348-3 (Version None)
Quarter: 2007Q3

REPORT INFORMATION
  Report Type: 
  Country: None (occurrence: None)
  Receive Date: 20070824
  Receipt Date: 20070809
  Transmission Date: 20080115
  Serious: Yes (Hospitalization)
  Sender: FDA-Public Use
  Company Number: US-SHR-US-2007-028453

PATIENT
  Age: 68 Year
  Sex: Male

DRUGS (6)
  1. LEUKINE [Suspect]
     Indication: PROSTATE CANCER
     Dosage: 250 MCG/M2, 3 DAYS/WEEKX12MONS
     Route: 058
     Dates: start: 20070619
  2. THALIDOMIDE [Suspect]
     Indication: PROSTATE CANCER
     Dosage: 200 MG, BED T.X 12 MONS
     Route: 048
     Dates: start: 20070619
  3. DOCETAXEL [Suspect]
     Indication: PROSTATE CANCER
     Dosage: 75 MG/M2, Q 3 WEEKS X 18 WEEKS
     Route: 042
     Dates: start: 20070601
  4. COUMADIN [Concomitant]
     Dosage: 2.5 MG, BED T.X 12 MONS
     Route: 048
     Dates: start: 20070619
  5. COUMADIN [Concomitant]
     Dosage: 5 MG, BED T.
     Route: 048
  6. DEXAMETHASONE 0.5MG TAB [Concomitant]
     Indication: PREMEDICATION
     Dosage: 8 MG,12HRS/3HRS/1HR BEFORE DOSE
     Route: 048
     Dates: start: 20070619

REACTIONS (1)
  - PULMONARY EMBOLISM [None]
